FAERS Safety Report 4748336-9 (Version None)
Quarter: 2005Q3

REPORT INFORMATION
  Report Type: 
  Country: None (occurrence: None)
  Receive Date: 20050818
  Receipt Date: 20050310
  Transmission Date: 20060218
  Serious: Yes (Hospitalization, Other)
  Sender: FDA-Public Use
  Company Number: US-MERCK-0503USA02193

PATIENT
  Age: 48 Year
  Sex: Male
  Weight: 97 kg

DRUGS (7)
  1. VIOXX [Suspect]
     Indication: ARTHRITIS
     Route: 048
     Dates: start: 19991102, end: 20040901
  2. VIOXX [Suspect]
     Route: 048
     Dates: start: 19991102, end: 20040901
  3. TENORMIN [Concomitant]
     Indication: HYPERTENSION
     Route: 048
     Dates: start: 19991102, end: 20031117
  4. TENORMIN [Concomitant]
     Route: 048
     Dates: start: 19991102, end: 20031117
  5. TENORMIN [Concomitant]
     Indication: CHEST PAIN
     Route: 048
     Dates: start: 19991102, end: 20031117
  6. TENORMIN [Concomitant]
     Route: 048
     Dates: start: 19991102, end: 20031117
  7. PERCOCET [Concomitant]
     Indication: PAIN
     Route: 048
     Dates: start: 19990101, end: 20040101

REACTIONS (9)
  - ANGINA PECTORIS [None]
  - ANXIETY DISORDER [None]
  - ATHEROSCLEROSIS [None]
  - BLOOD CHOLESTEROL INCREASED [None]
  - CARPAL TUNNEL SYNDROME [None]
  - CORONARY ARTERY DISEASE [None]
  - GASTROOESOPHAGEAL REFLUX DISEASE [None]
  - MYOCARDIAL INFARCTION [None]
  - NAUSEA [None]
